FAERS Safety Report 9693134 (Version 1)
Quarter: 2013Q4

REPORT INFORMATION
  Report Type: Spontaneous
  Country: CO (occurrence: CO)
  Receive Date: 20131118
  Receipt Date: 20131118
  Transmission Date: 20140711
  Serious: Yes (Disabling)
  Sender: FDA-Public Use
  Company Number: CO-UCBSA-102790

PATIENT
  Age: 55 Year
  Sex: Female

DRUGS (2)
  1. NEUPRO [Suspect]
     Indication: PARKINSON^S DISEASE
     Dosage: 12 MG DAILY
     Route: 062
     Dates: start: 20120719, end: 201308
  2. PRAMIPEXOLE [Concomitant]
     Dosage: 3.5 MG

REACTIONS (3)
  - Hypokinesia [Unknown]
  - Sensory disturbance [Unknown]
  - Muscular weakness [Unknown]
